FAERS Safety Report 7265699-3 (Version None)
Quarter: 2011Q1

REPORT INFORMATION
  Report Type: 
  Country: None (occurrence: None)
  Receive Date: 20110131
  Receipt Date: 20110120
  Transmission Date: 20110831
  Serious: Yes (Hospitalization, Disabling)
  Sender: FDA-Public Use
  Company Number: US-MERCK-1010USA00987

PATIENT
  Age: 73 Year
  Sex: Female
  Weight: 100 kg

DRUGS (6)
  1. PROZAC [Concomitant]
     Route: 065
  2. POTASSIUM (UNSPECIFIED) [Concomitant]
     Route: 065
  3. HYDROCHLOROTHIAZIDE [Concomitant]
     Route: 065
  4. COZAAR [Suspect]
     Route: 048
  5. ESTROGENS (UNSPECIFIED) [Concomitant]
     Route: 065
  6. TRAZODONE HYDROCHLORIDE [Concomitant]
     Route: 065

REACTIONS (6)
  - URTICARIA [None]
  - DIARRHOEA [None]
  - ANGIOEDEMA [None]
  - FEAR [None]
  - STOMATITIS [None]
  - SWELLING FACE [None]
